FAERS Safety Report 6148725-4 (Version None)
Quarter: 2009Q2

REPORT INFORMATION
  Report Type: 
  Country: None (occurrence: None)
  Receive Date: 20090408
  Receipt Date: 20090401
  Transmission Date: 20091009
  Serious: Yes (Hospitalization)
  Sender: FDA-Public Use
  Company Number: JP-ABBOTT-08P-087-0475907-00

PATIENT
  Sex: Female
  Weight: 38 kg

DRUGS (16)
  1. HUMIRA [Suspect]
     Indication: RHEUMATOID ARTHRITIS
     Route: 058
     Dates: start: 20080829, end: 20080829
  2. ATORVASTATIN CALCIUM HYDRATE [Concomitant]
     Indication: DRUG USE FOR UNKNOWN INDICATION
     Route: 048
  3. BETAMETHASONE [Concomitant]
     Indication: RHEUMATOID ARTHRITIS
     Route: 048
  4. BETAMETHASONE [Concomitant]
     Route: 048
  5. ALFACALCIDOL [Concomitant]
     Indication: DRUG USE FOR UNKNOWN INDICATION
     Route: 048
  6. CELECOXIB [Concomitant]
     Indication: RHEUMATOID ARTHRITIS
     Route: 048
  7. CELECOXIB [Concomitant]
     Route: 048
  8. LANSOPRAZOLE [Concomitant]
     Indication: GASTRITIS PROPHYLAXIS
     Route: 048
  9. TACROLIMUS HYDRATE [Concomitant]
     Indication: RHEUMATOID ARTHRITIS
     Route: 048
     Dates: start: 20060101
  10. TACROLIMUS HYDRATE [Concomitant]
     Route: 048
  11. EXTRACT OF INFLAMMATORY RABBIT SKIN INOCULATED BY VACCINIA VIRUS [Concomitant]
     Indication: RHEUMATOID ARTHRITIS
     Route: 042
  12. EXTRACT OF INFLAMMATORY RABBIT SKIN INOCULATED BY VACCINIA VIRUS [Concomitant]
     Route: 042
     Dates: end: 20080829
  13. MECOBALAMIN [Concomitant]
     Indication: RHEUMATOID ARTHRITIS
     Route: 042
  14. MECOBALAMIN [Concomitant]
     Dates: start: 20080829, end: 20080829
  15. EXTRACT FROM HEMOLYSED BLOOD OF YOUNG CATTLE [Concomitant]
     Indication: GASTRITIS PROPHYLAXIS
     Route: 042
     Dates: end: 20080829
  16. SALICYLAMIDE, ACETAMINOPHEN, ANHYDROUS CAFFEINE, PROMETHAZINE METHYLE [Concomitant]
     Indication: NASOPHARYNGITIS
     Route: 048

REACTIONS (6)
  - BLOOD CREATINE PHOSPHOKINASE INCREASED [None]
  - INJECTION SITE ERYTHEMA [None]
  - INTERSTITIAL LUNG DISEASE [None]
  - MUSCLE DISORDER [None]
  - POLYMYOSITIS [None]
  - URTICARIA [None]
